FAERS Safety Report 9816772 (Version 1)
Quarter: 2014Q1

REPORT INFORMATION
  Report Type: Spontaneous
  Country: US (occurrence: US)
  Receive Date: 20140114
  Receipt Date: 20140114
  Transmission Date: 20141002
  Serious: No
  Sender: FDA-Public Use
  Company Number: US-ENDO PHARMACEUTICALS INC.-PERC20130094

PATIENT
  Sex: Female
  Weight: 58.1 kg

DRUGS (4)
  1. PERCOCET [Suspect]
     Indication: PAIN
     Dosage: UNK
     Route: 048
  2. REVLIMID [Suspect]
     Indication: PLASMA CELL MYELOMA
     Route: 048
     Dates: start: 201103
  3. REVLIMID [Suspect]
     Route: 048
     Dates: start: 201107
  4. REVLIMID [Suspect]
     Dosage: 15 MG
     Route: 048
     Dates: start: 20121029

REACTIONS (2)
  - Haemorrhoids [Unknown]
  - Constipation [Unknown]
